FAERS Safety Report 8852898 (Version 2)
Quarter: 2012Q4

REPORT INFORMATION
  Report Type: 
  Country: US (occurrence: US)
  Receive Date: 20121022
  Receipt Date: 20121101
  Transmission Date: 20130627
  Serious: Yes (Disabling, Other)
  Sender: FDA-Public Use
  Company Number: US-009507513-1206USA00832

PATIENT

DRUGS (1)
  1. FOSAMAX [Suspect]
     Indication: OSTEOPENIA
     Dosage: 70 mg, qw
     Route: 048
     Dates: start: 2003, end: 201009

REACTIONS (8)
  - Tibia fracture [Not Recovered/Not Resolved]
  - Femur fracture [Not Recovered/Not Resolved]
  - Periodontal operation [Unknown]
  - Bone marrow oedema [Unknown]
  - Sports injury [Unknown]
  - Ligament sprain [Unknown]
  - Impaired healing [Unknown]
  - Eye operation [Unknown]
